FAERS Safety Report 9568404 (Version 1)
Quarter: 2013Q3

REPORT INFORMATION
  Report Type: Spontaneous
  Country: US (occurrence: US)
  Receive Date: 20130930
  Receipt Date: 20130930
  Transmission Date: 20140515
  Serious: No
  Sender: FDA-Public Use
  Company Number: US-AMGEN-USASP2013054189

PATIENT
  Age: 44 Year
  Sex: Female
  Weight: 85.26 kg

DRUGS (3)
  1. ENBREL [Suspect]
     Indication: PRODUCT USED FOR UNKNOWN INDICATION
     Dosage: 50 MG, ONCE WEEKLY
     Route: 065
  2. HYDROXYCHLOROQUINE [Concomitant]
     Dosage: 200 MG, UNK
  3. LUPRON DEPOT [Concomitant]
     Dosage: 11.25 MG, UNK

REACTIONS (1)
  - Joint swelling [Unknown]
